FAERS Safety Report 8169805-8 (Version None)
Quarter: 2012Q1

REPORT INFORMATION
  Report Type: 
  Country: None (occurrence: None)
  Receive Date: 20120228
  Receipt Date: 20120223
  Transmission Date: 20120608
  Serious: Yes (Disabling)
  Sender: FDA-Public Use
  Company Number: GB-SP-2012-02285

PATIENT
  Age: 66 Year

DRUGS (4)
  1. DIOXIN [Concomitant]
  2. LEVOTHYROXINE SODIUM [Concomitant]
  3. TICE BCG [Suspect]
     Indication: BLADDER CANCER
     Route: 043
     Dates: start: 20110906
  4. METHOTREXATE [Concomitant]
     Indication: RHEUMATOID ARTHRITIS
     Route: 048

REACTIONS (1)
  - RHEUMATOID ARTHRITIS [None]
